FAERS Safety Report 6256081-6 (Version None)
Quarter: 2009Q2

REPORT INFORMATION
  Report Type: 
  Country: None (occurrence: None)
  Receive Date: 20090630
  Receipt Date: 20090630
  Transmission Date: 20091009
  Serious: No
  Sender: FDA-Public Use
  Company Number: None

PATIENT
  Age: 24 Year
  Sex: Male
  Weight: 90.7194 kg

DRUGS (1)
  1. LORAZEPAM [Suspect]
     Indication: DIAGNOSTIC PROCEDURE
     Dosage: 1 MG QID PO -SEVERAL OCCASIONS
     Route: 048
     Dates: start: 20041001, end: 20051001

REACTIONS (2)
  - DRUG EFFECT DECREASED [None]
  - PRODUCT SUBSTITUTION ISSUE [None]
